FAERS Safety Report 10257816 (Version 1)
Quarter: 2014Q2

REPORT INFORMATION
  Report Type: Spontaneous
  Country: US (occurrence: None)
  Receive Date: 20140623
  Receipt Date: 20140623
  Transmission Date: 20141212
  Serious: Yes (Life-Threatening)
  Sender: FDA-Public Use
  Company Number: None

PATIENT
  Age: 38 Year
  Sex: Male
  Weight: 95.26 kg

DRUGS (1)
  1. LATUDA 20 MG [Suspect]
     Indication: BIPOLAR DISORDER
     Dosage: 1 PILL AT BEDTIME TAKEN BY MOUTH
     Route: 048
     Dates: start: 20140609, end: 20140619

REACTIONS (2)
  - Akathisia [None]
  - Suicidal ideation [None]
